FAERS Safety Report 6608247-0 (Version None)
Quarter: 2010Q1

REPORT INFORMATION
  Report Type: 
  Country: None (occurrence: None)
  Receive Date: 20100301
  Receipt Date: 20100222
  Transmission Date: 20100710
  Serious: Yes (Hospitalization)
  Sender: FDA-Public Use
  Company Number: IT-ROCHE-686335

PATIENT
  Sex: Female

DRUGS (12)
  1. AVASTIN [Suspect]
     Indication: RECTOSIGMOID CANCER
     Dosage: FREQUENCY: CYCLE, OERMANENTLY DISCONTINUED
     Route: 042
     Dates: start: 20091124, end: 20100109
  2. XELODA [Suspect]
     Indication: RECTOSIGMOID CANCER
     Dosage: FREQUENCY : CYLE
     Route: 042
     Dates: start: 20091125, end: 20100115
  3. XELODA [Suspect]
     Dosage: STARTED AT REDUCED DOSE, DOSE 1600 MG CYCLE
     Route: 042
     Dates: start: 20100211
  4. CAMPTOSAR [Suspect]
     Indication: RECTOSIGMOID CANCER
     Dosage: FREQUENCY: CYCLE
     Route: 042
     Dates: start: 20091124, end: 20100109
  5. CAMPTOSAR [Suspect]
     Dosage: 150 MG CYCLE, STARTED AT REDUCED DOSE
     Route: 042
     Dates: start: 20100211
  6. ELOXATIN [Suspect]
     Indication: RECTOSIGMOID CANCER
     Dosage: FREQUENCY: CYCLE
     Route: 042
     Dates: start: 20091115, end: 20100110
  7. ELOXATIN [Suspect]
     Dosage: 70 MG CYCLE, STARTED AT REDUCED DOSE
     Route: 042
     Dates: start: 20100211
  8. EMEND [Concomitant]
     Indication: PROPHYLAXIS OF NAUSEA AND VOMITING
     Route: 048
     Dates: start: 20091124, end: 20100109
  9. SOLDESAM [Concomitant]
     Indication: PROPHYLAXIS OF NAUSEA AND VOMITING
     Route: 042
     Dates: start: 20091124, end: 20100110
  10. ANTRA [Concomitant]
     Dates: start: 20091124, end: 20100110
  11. ALOXI [Concomitant]
     Indication: PROPHYLAXIS OF NAUSEA AND VOMITING
     Route: 042
     Dates: start: 20091124, end: 20100109
  12. ATROPINA [Concomitant]
     Dosage: DRUG NAME: ATROPINA GALENICA SENESE
     Route: 058
     Dates: start: 20091124, end: 20100109

REACTIONS (10)
  - ASTHENIA [None]
  - DECREASED APPETITE [None]
  - DEHYDRATION [None]
  - DIARRHOEA [None]
  - HYPOCALCAEMIA [None]
  - HYPOKALAEMIA [None]
  - METABOLIC ACIDOSIS [None]
  - RENAL FAILURE ACUTE [None]
  - VOMITING [None]
  - WEIGHT DECREASED [None]
